FAERS Safety Report 24549081 (Version 1)
Quarter: 2024Q4

REPORT INFORMATION
  Report Type: Spontaneous
  Country: US (occurrence: None)
  Receive Date: 20241024
  Receipt Date: 20241024
  Transmission Date: 20250115
  Serious: Yes (Hospitalization)
  Sender: Public
  Company Number: None

PATIENT
  Sex: Male

DRUGS (11)
  1. DALFAMPRIDINE [Suspect]
     Active Substance: DALFAMPRIDINE
     Indication: Multiple sclerosis
     Route: 048
     Dates: start: 20191016
  2. ACETAMINOPHEN [Concomitant]
     Active Substance: ACETAMINOPHEN
  3. ALEVE [Concomitant]
     Active Substance: NAPROXEN SODIUM
  4. AMPYRA [Concomitant]
     Active Substance: DALFAMPRIDINE
  5. ASPIRIN [Concomitant]
     Active Substance: ASPIRIN
  6. ASPIRIN [Concomitant]
     Active Substance: ASPIRIN
  7. ATORVASTATIN [Concomitant]
     Active Substance: ATORVASTATIN
  8. BACLOFEN [Concomitant]
     Active Substance: BACLOFEN
  9. CARVEDILOL [Concomitant]
     Active Substance: CARVEDILOL
  10. CLOPIDOGREL [Concomitant]
     Active Substance: CLOPIDOGREL BISULFATE
  11. DALFAMPRIDIN [Concomitant]

REACTIONS (4)
  - Musculoskeletal disorder [None]
  - Musculoskeletal disorder [None]
  - Wheelchair user [None]
  - Coronary artery bypass [None]
